FAERS Safety Report 5601142-5 (Version None)
Quarter: 2008Q1

REPORT INFORMATION
  Report Type: 
  Country: None (occurrence: None)
  Receive Date: 20080118
  Receipt Date: 20071228
  Transmission Date: 20080703
  Serious: Yes (Hospitalization, Other)
  Sender: FDA-Public Use
  Company Number: 2007SP025309

PATIENT
  Age: 7 Year
  Sex: Male

DRUGS (1)
  1. LORATADINE [Suspect]
     Indication: RHINITIS ALLERGIC
     Dosage: 20 MG;TID;PO
     Route: 048
     Dates: start: 20071213, end: 20071219

REACTIONS (6)
  - ARRHYTHMIA [None]
  - DYSPNOEA [None]
  - OVERDOSE [None]
  - PALPITATIONS [None]
  - SINUS ARRHYTHMIA [None]
  - SINUS BRADYCARDIA [None]
